FAERS Safety Report 4397711-3 (Version None)
Quarter: 2004Q3

REPORT INFORMATION
  Report Type: 
  Country: None (occurrence: None)
  Receive Date: 20040713
  Receipt Date: 20040709
  Transmission Date: 20050211
  Serious: Yes (Hospitalization)
  Sender: FDA-Public Use
  Company Number: OSCN-PR-0406S-0181

PATIENT
  Age: 56 Year
  Sex: Male

DRUGS (2)
  1. OMNISCAN [Suspect]
     Indication: SPONDYLOSIS
     Dosage: 10 ML, SINGLE DOSE, I.T.
     Route: 037
     Dates: start: 20040628, end: 20040628
  2. IOPAMIDOL (ISOVUE) [Concomitant]

REACTIONS (12)
  - AGITATION [None]
  - BLOOD CREATININE INCREASED [None]
  - CONFUSIONAL STATE [None]
  - CONVULSION [None]
  - DEAFNESS [None]
  - DIALYSIS [None]
  - EYE MOVEMENT DISORDER [None]
  - MUTISM [None]
  - OFF LABEL USE [None]
  - PNEUMONIA [None]
  - POST PROCEDURAL COMPLICATION [None]
  - RHABDOMYOLYSIS [None]
